FAERS Safety Report 19719771 (Version 2)
Quarter: 2021Q4

REPORT INFORMATION
  Report Type: Spontaneous
  Country: HU (occurrence: HU)
  Receive Date: 20210819
  Receipt Date: 20211116
  Transmission Date: 20220303
  Serious: Yes (Other)
  Sender: FDA-Public Use
  Company Number: HU-ROCHE-2746466

PATIENT
  Age: 48 Year
  Sex: Male

DRUGS (37)
  1. DOXORUBICIN [Suspect]
     Active Substance: DOXORUBICIN
     Indication: Diffuse large B-cell lymphoma
     Dosage: 5 CYCLE, 21 DAYS
     Route: 065
  2. DOXORUBICIN [Suspect]
     Active Substance: DOXORUBICIN
     Dosage: 6 CYCLE
     Route: 065
  3. DOXORUBICIN [Suspect]
     Active Substance: DOXORUBICIN
     Dosage: UNK UNK, CYCLE
     Route: 065
  4. DEXAMETHASONE [Suspect]
     Active Substance: DEXAMETHASONE
     Indication: Diffuse large B-cell lymphoma
     Dosage: UNK
  5. RITUXIMAB [Suspect]
     Active Substance: RITUXIMAB
     Indication: Diffuse large B-cell lymphoma recurrent
     Dosage: 375 MG/M2, TIW
     Route: 042
     Dates: start: 20181212, end: 20190327
  6. RITUXIMAB [Suspect]
     Active Substance: RITUXIMAB
     Indication: Follicular lymphoma
     Dosage: UNK, Q21D
     Route: 065
  7. RITUXIMAB [Suspect]
     Active Substance: RITUXIMAB
     Dosage: 6 CYCLES
     Route: 065
  8. RITUXIMAB [Suspect]
     Active Substance: RITUXIMAB
     Dosage: (RITUXIMAB-BENDAMUSTINE-VENETOCLAX INDUCTION THERAPY
     Route: 065
  9. RITUXIMAB [Suspect]
     Active Substance: RITUXIMAB
     Dosage: UNK (RITUXIMAB THERAPY A TOTAL OF 17 TIMES)
     Dates: end: 20190327
  10. RITUXIMAB [Suspect]
     Active Substance: RITUXIMAB
     Dosage: 5 CYCLE,21 DAYS
     Route: 065
  11. RITUXIMAB [Suspect]
     Active Substance: RITUXIMAB
     Dosage: 375 MILLIGRAM/SQ. METER, 375 MG/M2 FOR TOTAL OF 6 CYCLES EVERY 28 DAYS
     Route: 042
  12. PREDNISOLONE [Suspect]
     Active Substance: PREDNISOLONE
     Indication: Diffuse large B-cell lymphoma
     Dosage: UNK
     Route: 065
  13. PREDNISOLONE [Suspect]
     Active Substance: PREDNISOLONE
     Dosage: 6 CYCLE
     Route: 065
  14. PREDNISOLONE [Suspect]
     Active Substance: PREDNISOLONE
     Dosage: 5 CYCLE, 21 DAYS
     Route: 065
  15. BENDAMUSTINE [Suspect]
     Active Substance: BENDAMUSTINE
     Indication: Diffuse large B-cell lymphoma recurrent
     Dosage: 70 MG/M2 ON DAYS 1 AND 2 OF EACH CYCLE FOR 6 CYCLES EVERY 28 DAYS
     Route: 065
  16. VINCRISTINE [Suspect]
     Active Substance: VINCRISTINE
     Indication: Diffuse large B-cell lymphoma
     Dosage: UNK
     Route: 065
  17. VINCRISTINE [Suspect]
     Active Substance: VINCRISTINE
     Dosage: 6 CYCLE
     Route: 065
  18. VINCRISTINE [Suspect]
     Active Substance: VINCRISTINE
     Dosage: 5 CYCLE, 21 DAYS
     Route: 065
  19. MABTHERA [Suspect]
     Active Substance: RITUXIMAB
     Indication: Diffuse large B-cell lymphoma
     Dosage: 375 MILLIGRAM/SQ. METER (CORRESPONDED TO 700 MG )
  20. CARMUSTINE [Suspect]
     Active Substance: CARMUSTINE
     Indication: Diffuse large B-cell lymphoma
     Dosage: UNK
  21. VENETOCLAX [Suspect]
     Active Substance: VENETOCLAX
     Indication: Diffuse large B-cell lymphoma recurrent
     Dosage: 400 MILLIGRAM, QD, TITRATED UP TO 400 MG DAILY
     Route: 065
  22. VENETOCLAX [Suspect]
     Active Substance: VENETOCLAX
     Dosage: UNK, CYCLE
     Route: 065
  23. VENETOCLAX [Suspect]
     Active Substance: VENETOCLAX
     Dosage: 400 MILLIGRAM (50 MG TO 400 MG IN THE FIRST CYCLE (6 CYCLES EVERY 28 DAYS)
     Dates: end: 202005
  24. CYCLOPHOSPHAMIDE [Suspect]
     Active Substance: CYCLOPHOSPHAMIDE
     Indication: Diffuse large B-cell lymphoma
     Dosage: UNK
     Route: 065
  25. CYCLOPHOSPHAMIDE [Suspect]
     Active Substance: CYCLOPHOSPHAMIDE
     Dosage: 6 CYCLE
     Route: 065
  26. CYCLOPHOSPHAMIDE [Suspect]
     Active Substance: CYCLOPHOSPHAMIDE
     Dosage: 5 CYCLE, 21 DAYS
  27. ETOPOSIDE [Suspect]
     Active Substance: ETOPOSIDE
     Indication: Diffuse large B-cell lymphoma
     Dosage: UNK
     Route: 065
  28. CYTARABINE [Suspect]
     Active Substance: CYTARABINE
     Indication: Diffuse large B-cell lymphoma
     Dosage: UNK
     Route: 065
  29. MELPHALAN [Suspect]
     Active Substance: MELPHALAN
     Indication: Diffuse large B-cell lymphoma
     Dosage: UNK
     Route: 065
  30. CISPLATIN [Suspect]
     Active Substance: CISPLATIN
     Indication: Diffuse large B-cell lymphoma
     Dosage: UNK
  31. METHOTREXATE [Suspect]
     Active Substance: METHOTREXATE
     Indication: Follicular lymphoma
     Dosage: UNK
  32. AMIKACIN;CEFTAZIDIME [Concomitant]
     Dosage: UNK
  33. FLUCONAZOLE [Concomitant]
     Active Substance: FLUCONAZOLE
     Indication: Candida infection
     Dosage: UNK
  34. MEROPENEM [Concomitant]
     Active Substance: MEROPENEM
     Indication: Febrile neutropenia
     Dosage: UNK
  35. CEFTRIAXONE [Concomitant]
     Active Substance: CEFTRIAXONE
     Indication: Febrile neutropenia
     Dosage: UNK
  36. AMIKACIN [Concomitant]
     Active Substance: AMIKACIN
     Indication: Product used for unknown indication
     Dosage: UNK
  37. CEFTAZIDIME [Concomitant]
     Active Substance: CEFTAZIDIME
     Indication: Product used for unknown indication
     Dosage: UNK

REACTIONS (13)
  - Pneumonia [Unknown]
  - Candida pneumonia [Unknown]
  - Febrile neutropenia [Recovering/Resolving]
  - Drug resistance [Unknown]
  - Respiratory failure [Recovering/Resolving]
  - Neutropenia [Unknown]
  - Myelosuppression [Unknown]
  - Infection [Unknown]
  - Candida infection [Recovering/Resolving]
  - General physical health deterioration [Recovering/Resolving]
  - Diffuse large B-cell lymphoma recurrent [Unknown]
  - Septic shock [Unknown]
  - Sepsis [Unknown]
